FAERS Safety Report 5844427-X (Version None)
Quarter: 2008Q3

REPORT INFORMATION
  Report Type: 
  Country: None (occurrence: None)
  Receive Date: 20080811
  Receipt Date: 20080801
  Transmission Date: 20090109
  Serious: Yes (Life-Threatening, Other)
  Sender: FDA-Public Use
  Company Number: WAES 0808CHN00003

PATIENT
  Age: 57 Year
  Sex: Male

DRUGS (16)
  1. CANCIDAS [Suspect]
     Indication: CANDIDIASIS
     Dosage: 70 MG INJ, 50 MG INJ
     Dates: start: 20080509, end: 20080509
  2. CANCIDAS [Suspect]
     Indication: CANDIDIASIS
     Dosage: 70 MG INJ, 50 MG INJ
     Dates: start: 20080510, end: 20080608
  3. OMEPRAZOLE [Concomitant]
  4. PRIMAXIN  (THERAPY  UNSPECIFIED) [Concomitant]
  5. ALBUMIN (HUMAN) [Concomitant]
  6. ALPROSTADIL [Concomitant]
  7. AMBROXOL [Concomitant]
  8. PLASMA [Concomitant]
  9. BLOOD, WHOLE [Concomitant]
  10. FLUCONAZOLE [Concomitant]
  11. HEPARIN LOW MOLECULAR WEIGHT [Concomitant]
  12. MEROPENEM [Concomitant]
  13. METOCLOPRAMIDE [Concomitant]
  14. METRONIDAZOLE [Concomitant]
  15. OCTREOTIDE ACETATE [Concomitant]
  16. TEICOPLANIN [Concomitant]

REACTIONS (2)
  - ASCITES [None]
  - SHOCK [None]
